FAERS Safety Report 9129599 (Version 2)
Quarter: 2013Q1

REPORT INFORMATION
  Report Type: Report from Study
  Country: DE (occurrence: DE)
  Receive Date: 20130228
  Receipt Date: 20130314
  Transmission Date: 20140127
  Serious: Yes (Hospitalization)
  Sender: FDA-Public Use
  Company Number: DE-ROCHE-1194349

PATIENT
  Sex: Male
  Weight: 64 kg

DRUGS (1)
  1. BEVACIZUMAB [Suspect]
     Indication: METASTATIC RENAL CELL CARCINOMA
     Dosage: LAST DOSE PRIOR TO EVENT 14/FEB/2013
     Route: 042
     Dates: start: 201207

REACTIONS (5)
  - Hallucination [Not Recovered/Not Resolved]
  - Leukoencephalopathy [Not Recovered/Not Resolved]
  - Cerebral atrophy [Not Recovered/Not Resolved]
  - Amaurosis [Not Recovered/Not Resolved]
  - General physical health deterioration [Not Recovered/Not Resolved]
